FAERS Safety Report 7365929-3 (Version None)
Quarter: 2011Q1

REPORT INFORMATION
  Report Type: 
  Country: None (occurrence: None)
  Receive Date: 20110322
  Receipt Date: 20110311
  Transmission Date: 20110831
  Serious: Yes (Other)
  Sender: FDA-Public Use
  Company Number: US-BAYER-2011-022360

PATIENT
  Sex: Female

DRUGS (1)
  1. MIRENA [Suspect]
     Indication: CONTRACEPTION
     Dosage: UNK
     Route: 015
     Dates: start: 20081101, end: 20110309

REACTIONS (3)
  - RUPTURED ECTOPIC PREGNANCY [None]
  - GENITAL HAEMORRHAGE [None]
  - UTERINE HAEMORRHAGE [None]
